FAERS Safety Report 14047135 (Version 2)
Quarter: 2017Q4

REPORT INFORMATION
  Report Type: Spontaneous
  Country: IN (occurrence: IN)
  Receive Date: 20171005
  Receipt Date: 20171118
  Transmission Date: 20180321
  Serious: Yes (Other)
  Sender: FDA-Public Use
  Company Number: IN-DRREDDYS-GPV/IND/17/0093900

PATIENT
  Sex: Female

DRUGS (1)
  1. OMEZ [Suspect]
     Active Substance: OMEPRAZOLE
     Indication: PRODUCT USED FOR UNKNOWN INDICATION
     Route: 048

REACTIONS (9)
  - Loss of consciousness [Recovered/Resolved]
  - Hypoaesthesia [Recovered/Resolved]
  - Drug hypersensitivity [Recovered/Resolved]
  - Dysstasia [Recovered/Resolved]
  - Drug dispensing error [Unknown]
  - Pruritus [Recovered/Resolved]
  - Rash [Recovered/Resolved]
  - Abdominal pain upper [Recovered/Resolved]
  - Anaphylactic reaction [Recovered/Resolved]
